FAERS Safety Report 11265994 (Version 1)
Quarter: 2015Q2

REPORT INFORMATION
  Report Type: Spontaneous
  Country: US (occurrence: None)
  Receive Date: 20150625
  Receipt Date: 20150625
  Transmission Date: 20150821
  Serious: Yes (Life-Threatening, Hospitalization)
  Sender: FDA-Public Use
  Company Number: A-US2015-110779

PATIENT
  Age: 46 Year
  Sex: Female

DRUGS (8)
  1. OPSUMIT [Suspect]
     Active Substance: MACITENTAN
     Indication: PULMONARY ARTERIAL HYPERTENSION
     Route: 048
  2. DIGOXIN. [Concomitant]
     Active Substance: DIGOXIN
  3. ALDACTONE [Concomitant]
     Active Substance: SPIRONOLACTONE
  4. TORSEMIDE. [Concomitant]
     Active Substance: TORSEMIDE
  5. BUMEX (BUMETANIDE) [Concomitant]
  6. COUMADIN [Concomitant]
     Active Substance: WARFARIN SODIUM
  7. VELETRI [Suspect]
     Active Substance: EPOPROSTENOL
     Indication: PULMONARY ARTERIAL HYPERTENSION
     Dosage: 20 NG/KG, PER MIN, INTRAVENOUS
     Route: 042
     Dates: start: 20150101, end: 20150103
  8. REVATIO (SILDENAFIL CITRATE) [Concomitant]

REACTIONS (5)
  - Abdominal discomfort [None]
  - Generalised oedema [None]
  - Dyspnoea [None]
  - Pulmonary arterial hypertension [None]
  - Condition aggravated [None]

NARRATIVE: CASE EVENT DATE: 20150103
